FAERS Safety Report 11398713 (Version 2)
Quarter: 2016Q4

REPORT INFORMATION
  Report Type: Spontaneous
  Country: US (occurrence: US)
  Receive Date: 20150820
  Receipt Date: 20161101
  Transmission Date: 20170206
  Serious: Yes (Other)
  Sender: FDA-Public Use
  Company Number: US-ELI_LILLY_AND_COMPANY-US201508003688

PATIENT
  Sex: Female

DRUGS (2)
  1. CYMBALTA [Suspect]
     Active Substance: DULOXETINE HYDROCHLORIDE
     Indication: DEPRESSION
     Dosage: 60 MG, UNKNOWN
     Route: 065
  2. CYMBALTA [Suspect]
     Active Substance: DULOXETINE HYDROCHLORIDE
     Indication: PAIN
     Dosage: 30 MG, UNKNOWN
     Route: 065

REACTIONS (21)
  - Aggression [Unknown]
  - Dizziness [Unknown]
  - Disturbance in attention [Unknown]
  - Depressed mood [Unknown]
  - Drug withdrawal syndrome [Unknown]
  - Memory impairment [Unknown]
  - Vertigo [Unknown]
  - Rash generalised [Unknown]
  - Asthenia [Unknown]
  - Fatigue [Unknown]
  - Syncope [Unknown]
  - Migraine [Unknown]
  - Paraesthesia [Unknown]
  - Agitation [Unknown]
  - Irritability [Unknown]
  - Insomnia [Unknown]
  - Nausea [Unknown]
  - Hypoaesthesia [Unknown]
  - Confusional state [Unknown]
  - Nightmare [Unknown]
  - Influenza like illness [Unknown]
